FAERS Safety Report 16342541 (Version 3)
Quarter: 2023Q2

REPORT INFORMATION
  Report Type: Spontaneous
  Country: US (occurrence: US)
  Receive Date: 20190522
  Receipt Date: 20230413
  Transmission Date: 20230721
  Serious: Yes (Other)
  Sender: FDA-Public Use
  Company Number: US-GILEAD-2019-0407993

PATIENT
  Age: 59 Year
  Sex: Female
  Weight: 78.912 kg

DRUGS (55)
  1. TRUVADA [Suspect]
     Active Substance: EMTRICITABINE\TENOFOVIR DISOPROXIL FUMARATE
     Indication: HIV infection
     Dosage: 200-300MG
     Route: 048
     Dates: start: 2004, end: 20161012
  2. DESCOVY [Concomitant]
     Active Substance: EMTRICITABINE\TENOFOVIR ALAFENAMIDE FUMARATE
  3. ODEFSEY [Concomitant]
     Active Substance: EMTRICITABINE\RILPIVIRINE HYDROCHLORIDE\TENOFOVIR ALAFENAMIDE FUMARATE
  4. FOSAMAX [Concomitant]
     Active Substance: ALENDRONATE SODIUM
  5. VITAMIN D3 [Concomitant]
     Active Substance: CHOLECALCIFEROL
  6. CALCIUM [Concomitant]
     Active Substance: CALCIUM
  7. ISENTRESS [Concomitant]
     Active Substance: RALTEGRAVIR POTASSIUM
  8. ISENTRESS [Concomitant]
     Active Substance: RALTEGRAVIR POTASSIUM
  9. SUSTIVA [Concomitant]
     Active Substance: EFAVIRENZ
  10. TIVICAY [Concomitant]
     Active Substance: DOLUTEGRAVIR SODIUM
  11. IBUPROFEN [Concomitant]
     Active Substance: IBUPROFEN
  12. NAPROXEN [Concomitant]
     Active Substance: NAPROXEN
  13. GABAPENTIN [Concomitant]
     Active Substance: GABAPENTIN
  14. PREVACID [Concomitant]
     Active Substance: LANSOPRAZOLE
  15. VENTOLIN HFA [Concomitant]
     Active Substance: ALBUTEROL SULFATE
  16. CITALOPRAM [Concomitant]
     Active Substance: CITALOPRAM HYDROBROMIDE
  17. PROMETHAZINE [Concomitant]
     Active Substance: PROMETHAZINE HYDROCHLORIDE
  18. HYDROCODONE BITARTRATE AND ACETAMINOPHEN [Concomitant]
     Active Substance: ACETAMINOPHEN\HYDROCODONE BITARTRATE
  19. TRAMADOL [Concomitant]
     Active Substance: TRAMADOL
  20. METRONIDAZOLE [Concomitant]
     Active Substance: METRONIDAZOLE
  21. CYCLOBENZAPRINE [Concomitant]
     Active Substance: CYCLOBENZAPRINE
  22. ADVAIR HFA [Concomitant]
     Active Substance: FLUTICASONE PROPIONATE\SALMETEROL XINAFOATE
  23. HYDROCHLOROTHIAZIDE [Concomitant]
     Active Substance: HYDROCHLOROTHIAZIDE
  24. DESONIDE [Concomitant]
     Active Substance: DESONIDE
  25. FOLIC ACID [Concomitant]
     Active Substance: FOLIC ACID
  26. METHYLPREDNISOLONE [Concomitant]
     Active Substance: METHYLPREDNISOLONE
  27. LEVAQUIN [Concomitant]
     Active Substance: LEVOFLOXACIN
  28. AMOXICILLIN [Concomitant]
     Active Substance: AMOXICILLIN
  29. LANSOPRAZOLE [Concomitant]
     Active Substance: LANSOPRAZOLE
  30. POLYETHYLENE GLYCOL 3350 [Concomitant]
     Active Substance: POLYETHYLENE GLYCOL 3350
  31. SULFAMETHOXAZOLE [Concomitant]
     Active Substance: SULFAMETHOXAZOLE
  32. AMOXICILLIN\CLAVULANATE POTASSIUM [Concomitant]
     Active Substance: AMOXICILLIN\CLAVULANATE POTASSIUM
  33. ACETAMINOPHEN\CODEINE PHOSPHATE [Concomitant]
     Active Substance: ACETAMINOPHEN\CODEINE PHOSPHATE
  34. ESOMEPRAZOLE MAGNESIUM [Concomitant]
     Active Substance: ESOMEPRAZOLE MAGNESIUM
  35. OMEPRAZOLE [Concomitant]
     Active Substance: OMEPRAZOLE
  36. POTASSIUM [Concomitant]
     Active Substance: POTASSIUM
  37. EVISTA [Concomitant]
     Active Substance: RALOXIFENE HYDROCHLORIDE
  38. MIRTAZAPINE [Concomitant]
     Active Substance: MIRTAZAPINE
  39. SAVELLA [Concomitant]
     Active Substance: MILNACIPRAN HYDROCHLORIDE
  40. KETOCONAZOLE [Concomitant]
     Active Substance: KETOCONAZOLE
  41. BUTRANS [Concomitant]
     Active Substance: BUPRENORPHINE
  42. LIDODERM [Concomitant]
     Active Substance: LIDOCAINE
  43. PROAIR HFA [Concomitant]
     Active Substance: ALBUTEROL SULFATE
  44. AZITHROMYCIN [Concomitant]
     Active Substance: AZITHROMYCIN
  45. DEXAMETHASONE\NEOMYCIN SULFATE\POLYMYXIN B SULFATE [Concomitant]
     Active Substance: DEXAMETHASONE\NEOMYCIN SULFATE\POLYMYXIN B SULFATE
  46. PROVENTIL HFA [Concomitant]
     Active Substance: ALBUTEROL SULFATE
  47. KLOR-CON [Concomitant]
     Active Substance: POTASSIUM CHLORIDE
  48. BUPROPION [Concomitant]
     Active Substance: BUPROPION
  49. AMLODIPINE [Concomitant]
     Active Substance: AMLODIPINE BESYLATE
  50. QVAR [Concomitant]
     Active Substance: BECLOMETHASONE DIPROPIONATE
  51. ALBUTEROL\IPRATROPIUM [Concomitant]
     Active Substance: ALBUTEROL\IPRATROPIUM
  52. SPIRIVA [Concomitant]
     Active Substance: TIOTROPIUM BROMIDE MONOHYDRATE
  53. COMBIVENT RESPIMAT [Concomitant]
     Active Substance: ALBUTEROL SULFATE\IPRATROPIUM BROMIDE
  54. TERCONAZOLE [Concomitant]
     Active Substance: TERCONAZOLE
  55. VENTOLIN [Concomitant]
     Active Substance: ALBUTEROL SULFATE

REACTIONS (12)
  - Hip arthroplasty [Unknown]
  - Osteoporosis [Not Recovered/Not Resolved]
  - Osteopenia [Not Recovered/Not Resolved]
  - Depression [Not Recovered/Not Resolved]
  - General physical health deterioration [Not Recovered/Not Resolved]
  - Bone loss [Unknown]
  - Quality of life decreased [Not Recovered/Not Resolved]
  - Emotional distress [Not Recovered/Not Resolved]
  - Anhedonia [Not Recovered/Not Resolved]
  - Economic problem [Not Recovered/Not Resolved]
  - Anxiety [Not Recovered/Not Resolved]
  - Pain [Not Recovered/Not Resolved]

NARRATIVE: CASE EVENT DATE: 20110101
